FAERS Safety Report 5150186-9 (Version None)
Quarter: 2006Q4

REPORT INFORMATION
  Report Type: 
  Country: None (occurrence: None)
  Receive Date: 20061114
  Receipt Date: 20061109
  Transmission Date: 20070319
  Serious: Yes (Other)
  Sender: FDA-Public Use
  Company Number: AU-BRISTOL-MYERS SQUIBB COMPANY-13572284

PATIENT
  Age: 25 Year
  Sex: Male

DRUGS (3)
  1. TAXOL [Suspect]
     Route: 042
     Dates: start: 20050803, end: 20050803
  2. MESNA [Concomitant]
  3. SALINE [Concomitant]

REACTIONS (5)
  - AGITATION [None]
  - ANAPHYLACTIC REACTION [None]
  - COUGH [None]
  - DYSPNOEA [None]
  - PRURITUS [None]
